FAERS Safety Report 7100497-2 (Version None)
Quarter: 2010Q4

REPORT INFORMATION
  Report Type: 
  Country: None (occurrence: None)
  Receive Date: 20101113
  Receipt Date: 20100210
  Transmission Date: 20110411
  Serious: No
  Sender: FDA-Public Use
  Company Number: US-ALLERGAN-1001751US

PATIENT
  Age: 51 Year
  Sex: Female

DRUGS (3)
  1. BOTOX COSMETIC [Suspect]
     Indication: SKIN WRINKLING
     Dosage: 20 UNITS, SINGLE
     Route: 030
     Dates: start: 20100208, end: 20100208
  2. BOTOX COSMETIC [Suspect]
     Dosage: 50 UNITS, SINGLE
     Route: 030
     Dates: start: 20100201, end: 20100201
  3. RETIN-A [Concomitant]
     Indication: PHOTODERMATOSIS
     Dosage: UNK
     Route: 061
     Dates: start: 20100201

REACTIONS (2)
  - INJECTION SITE PAPULE [None]
  - THERAPEUTIC RESPONSE DECREASED [None]
